FAERS Safety Report 10308434 (Version 1)
Quarter: 2014Q3

REPORT INFORMATION
  Report Type: Spontaneous
  Country: NO (occurrence: NO)
  Receive Date: 20140716
  Receipt Date: 20140716
  Transmission Date: 20150326
  Serious: Yes (Death)
  Sender: FDA-Public Use
  Company Number: NO-MYLANLABS-2014S1016417

PATIENT
  Age: 70 Year
  Sex: Male

DRUGS (15)
  1. LANSOPRAZOLE. [Suspect]
     Active Substance: LANSOPRAZOLE
     Indication: PROPHYLAXIS AGAINST GASTROINTESTINAL ULCER
     Route: 048
     Dates: start: 20140425, end: 20140509
  2. FOLSYRE NAF [Concomitant]
     Active Substance: FOLIC ACID
     Indication: PROPHYLAXIS
     Route: 048
  3. METHOTREXATE [Suspect]
     Active Substance: METHOTREXATE
     Indication: RHEUMATOID ARTHRITIS
     Route: 048
     Dates: start: 20010307, end: 20140501
  4. FLUCONAZOLE. [Interacting]
     Active Substance: FLUCONAZOLE
     Indication: FUNGAL INFECTION
     Route: 048
     Dates: start: 20140411, end: 20140508
  5. MEDROL [Concomitant]
     Active Substance: METHYLPREDNISOLONE
     Dosage: HIGH-DOSE
     Dates: start: 20140426, end: 20140428
  6. NEXIUM [Concomitant]
     Active Substance: ESOMEPRAZOLE MAGNESIUM
     Indication: PROPHYLAXIS AGAINST GASTROINTESTINAL ULCER
     Route: 048
     Dates: start: 20140509, end: 20140522
  7. IBUX [Concomitant]
     Active Substance: IBUPROFEN
     Route: 048
     Dates: start: 20140411, end: 20140413
  8. ALBYL-E [Concomitant]
     Active Substance: ASPIRIN\MAGNESIUM OXIDE
     Dosage: CHANGED TO ALBYL-E SUPP 150 MG X 1 DURING HOSPITAL STAY
     Route: 048
  9. PREDNISOLON [Suspect]
     Active Substance: PREDNISOLONE
     Route: 048
     Dates: start: 20140429
  10. CORDARONE [Interacting]
     Active Substance: AMIODARONE HYDROCHLORIDE
     Route: 048
  11. CALCIGRAN FORTE [Concomitant]
     Indication: OSTEOPOROSIS PROPHYLAXIS
     Route: 048
     Dates: end: 20140502
  12. MEDROL [Suspect]
     Active Substance: METHYLPREDNISOLONE
     Indication: RHEUMATOID ARTHRITIS
     Route: 048
     Dates: end: 20140428
  13. REMERON [Concomitant]
     Active Substance: MIRTAZAPINE
     Indication: DEPRESSION
     Route: 048
     Dates: end: 20140502
  14. OCTAGAM IMMUNE GLOBULIN (HUMAN) [Concomitant]
     Active Substance: HUMAN IMMUNOGLOBULIN G
     Route: 041
     Dates: start: 20140426, end: 20140430
  15. SOMAC [Concomitant]
     Active Substance: PANTOPRAZOLE SODIUM
     Route: 048
     Dates: start: 20140523

REACTIONS (3)
  - Pancytopenia [Fatal]
  - Drug interaction [Unknown]
  - Immunosuppression [Fatal]

NARRATIVE: CASE EVENT DATE: 201404
